FAERS Safety Report 7427127 (Version 7)
Quarter: 2014Q4

REPORT INFORMATION
  Report Type: Spontaneous
  Country: US (occurrence: US)
  Receive Date: 20100621
  Receipt Date: 20141230
  Transmission Date: 20150529
  Serious: Yes (Hospitalization, Disabling, Other)
  Sender: FDA-Public Use
  Company Number: US-009507513-1006USA03204

PATIENT
  Sex: Female

DRUGS (4)
  1. FOSAMAX [Suspect]
     Active Substance: ALENDRONATE SODIUM
     Indication: OSTEOPOROSIS
     Dosage: 70 MG, QW
     Route: 048
     Dates: start: 200803, end: 20091101
  2. FOSAMAX [Suspect]
     Active Substance: ALENDRONATE SODIUM
     Indication: OSTEOPENIA
  3. FOSAMAX [Suspect]
     Active Substance: ALENDRONATE SODIUM
     Indication: OSTEOPOROSIS
     Dosage: 70 MG, QW
     Route: 048
     Dates: start: 20021009, end: 20091120
  4. OS-CAL + D [Concomitant]
     Dosage: UNK UNK, BID
     Dates: start: 1997

REACTIONS (33)
  - Diverticulum [Unknown]
  - Lumbar radiculopathy [Unknown]
  - Kyphosis [Unknown]
  - Cough [Unknown]
  - Invasive ductal breast carcinoma [Unknown]
  - Femur fracture [Recovered/Resolved]
  - Osteoarthritis [Unknown]
  - Ataxia [Unknown]
  - Onychoclasis [Unknown]
  - Arthritis [Unknown]
  - Rotator cuff syndrome [Not Recovered/Not Resolved]
  - Stress fracture [Not Recovered/Not Resolved]
  - Thoracic vertebral fracture [Unknown]
  - Hypercholesterolaemia [Unknown]
  - Nocturia [Unknown]
  - Fall [Unknown]
  - Bursitis [Not Recovered/Not Resolved]
  - Rhinitis perennial [Not Recovered/Not Resolved]
  - Nail disorder [Not Recovered/Not Resolved]
  - Grief reaction [Unknown]
  - Intramedullary rod insertion [Recovered/Resolved]
  - Femur fracture [Recovered/Resolved]
  - Hypertonic bladder [Unknown]
  - Intervertebral disc degeneration [Unknown]
  - Bone contusion [Not Recovered/Not Resolved]
  - Body height decreased [Not Recovered/Not Resolved]
  - Osteoporosis [Not Recovered/Not Resolved]
  - Skin injury [Unknown]
  - Contusion [Unknown]
  - Hyperlipidaemia [Not Recovered/Not Resolved]
  - Ligament sprain [Unknown]
  - Electrocardiogram abnormal [Unknown]
  - Spinal osteoarthritis [Unknown]

NARRATIVE: CASE EVENT DATE: 2007
